FAERS Safety Report 10012119 (Version 3)
Quarter: 2014Q1

REPORT INFORMATION
  Report Type: Report from Study
  Country: US (occurrence: US)
  Receive Date: 20140314
  Receipt Date: 20140319
  Transmission Date: 20141002
  Serious: Yes (Hospitalization)
  Sender: FDA-Public Use
  Company Number: US-B.I. PHARMACEUTICALS,INC./RIDGEFIELD-2013-BI-15263BP

PATIENT
  Age: 70 Year
  Sex: Female
  Weight: 48.6 kg

DRUGS (2)
  1. BIBW 2992 [Suspect]
     Indication: LUNG NEOPLASM MALIGNANT
     Dosage: 40 MG
     Route: 048
     Dates: start: 20130508
  2. BIBW 2992 [Suspect]
     Indication: EGFR GENE MUTATION
     Route: 048
     Dates: start: 20130604

REACTIONS (5)
  - Anuria [Recovered/Resolved]
  - Renal failure acute [Recovered/Resolved]
  - Hyponatraemia [Recovered/Resolved]
  - Hypokalaemia [Recovered/Resolved]
  - Diarrhoea [Recovered/Resolved]
